FAERS Safety Report 8438756-3 (Version None)
Quarter: 2012Q2

REPORT INFORMATION
  Report Type: 
  Country: None (occurrence: None)
  Receive Date: 20120615
  Receipt Date: 20120613
  Transmission Date: 20120825
  Serious: No
  Sender: FDA-Public Use
  Company Number: US-BAYER-2012-058856

PATIENT
  Sex: Male

DRUGS (4)
  1. NEXIUM [Concomitant]
     Dosage: 40 MG, UNK
     Route: 048
  2. DIAZEPAM [Concomitant]
     Dosage: 10 MG, UNK
     Route: 048
  3. STAXYN [Suspect]
     Indication: ERECTILE DYSFUNCTION
     Dosage: 10 MG, PRN
     Dates: start: 20120611, end: 20120611
  4. MULTI-VITAMINS [Concomitant]

REACTIONS (1)
  - ERECTILE DYSFUNCTION [None]
